FAERS Safety Report 7462452-2 (Version None)
Quarter: 2011Q2

REPORT INFORMATION
  Report Type: 
  Country: None (occurrence: None)
  Receive Date: 20110506
  Receipt Date: 20110502
  Transmission Date: 20111010
  Serious: Yes (Other)
  Sender: FDA-Public Use
  Company Number: US-BRISTOL-MYERS SQUIBB COMPANY-15636707

PATIENT
  Age: 75 Year
  Sex: Female

DRUGS (7)
  1. FUROSEMIDE [Concomitant]
  2. VYTORIN [Concomitant]
  3. JANUVIA [Concomitant]
  4. GLUCOTROL XL [Concomitant]
  5. DIGOXIN [Concomitant]
  6. GLUCOPHAGE [Suspect]
     Dosage: ALSO 2 TAB IN MORNING,1 TAB AT NIGHT. DOSE DECREASED
  7. BENAZEPRIL HYDROCHLORIDE [Concomitant]

REACTIONS (5)
  - VISUAL ACUITY REDUCED [None]
  - HYPOGLYCAEMIA [None]
  - CARDIAC DISORDER [None]
  - BLOOD GLUCOSE INCREASED [None]
  - GAIT DISTURBANCE [None]
